FAERS Safety Report 6456706-6 (Version None)
Quarter: 2009Q4

REPORT INFORMATION
  Report Type: 
  Country: None (occurrence: None)
  Receive Date: 20091119
  Receipt Date: 20091109
  Transmission Date: 20100525
  Serious: Yes (Other)
  Sender: FDA-Public Use
  Company Number: 2007AL004526

PATIENT
  Age: 59 Year
  Sex: Male

DRUGS (9)
  1. METFORMIN HYDROCHLORIDE [Suspect]
     Dosage: PO
     Route: 048
     Dates: start: 19960101
  2. ACOMPLIA [Concomitant]
  3. LISINOPRIL [Concomitant]
  4. FRUSEMIDE [Concomitant]
  5. GLICLAZIDE [Concomitant]
  6. ASPIRIN [Concomitant]
  7. SIMVASTATIN [Concomitant]
  8. PIOGLITAZONE [Concomitant]
  9. ANGIOTENSIN II RECEPTOR BLOCKER [Concomitant]

REACTIONS (1)
  - RENAL FAILURE [None]
